FAERS Safety Report 18005496 (Version 2)
Quarter: 2020Q3

REPORT INFORMATION
  Report Type: Spontaneous
  Country: US (occurrence: US)
  Receive Date: 20200709
  Receipt Date: 20200730
  Transmission Date: 20201103
  Serious: Yes (Other)
  Sender: FDA-Public Use
  Company Number: US-ACTELION-A-NJ2020-206682

PATIENT
  Age: 66 Year
  Sex: Female

DRUGS (1)
  1. VELETRI [Suspect]
     Active Substance: EPOPROSTENOL
     Indication: PULMONARY ARTERIAL HYPERTENSION
     Dosage: 18 NG/KG, PER MIN
     Route: 042
     Dates: start: 20200129, end: 20200716

REACTIONS (7)
  - Weight decreased [Unknown]
  - Nausea [Unknown]
  - Nystagmus [Unknown]
  - Seizure [Unknown]
  - Vomiting [Unknown]
  - Bickerstaff^s encephalitis [Unknown]
  - Mental status changes [Unknown]

NARRATIVE: CASE EVENT DATE: 202001
